FAERS Safety Report 9307979 (Version 1)
Quarter: 2013Q2

REPORT INFORMATION
  Report Type: Spontaneous
  Country: AU (occurrence: AU)
  Receive Date: 20130524
  Receipt Date: 20130524
  Transmission Date: 20140414
  Serious: Yes (Other)
  Sender: FDA-Public Use
  Company Number: AU-ROCHE-1228506

PATIENT
  Sex: Female

DRUGS (7)
  1. XOLAIR [Suspect]
     Indication: PRODUCT USED FOR UNKNOWN INDICATION
     Route: 065
  2. DIAMICRON MR [Concomitant]
  3. LANTUS [Concomitant]
  4. NOVORAPID [Concomitant]
  5. SERETIDE [Concomitant]
  6. SOMAC (AUSTRALIA) [Concomitant]
  7. VENTOLIN [Concomitant]

REACTIONS (1)
  - Anaphylactic reaction [Unknown]
